FAERS Safety Report 6826307-6 (Version None)
Quarter: 2010Q3

REPORT INFORMATION
  Report Type: 
  Country: None (occurrence: None)
  Receive Date: 20100709
  Receipt Date: 20100706
  Transmission Date: 20110219
  Serious: Yes (Hospitalization, Other)
  Sender: FDA-Public Use
  Company Number: CO-ROXANE LABORATORIES, INC.-2010-RO-00789RO

PATIENT
  Age: 47 Year
  Sex: Male

DRUGS (3)
  1. ZIDOVUDINE [Suspect]
     Indication: HIV INFECTION
  2. EFAVIRENZ [Suspect]
     Indication: HIV INFECTION
  3. LAMIVUDINE [Suspect]
     Indication: HIV INFECTION

REACTIONS (5)
  - ADRENAL INSUFFICIENCY [None]
  - HYPOTENSION [None]
  - IMMUNE RECONSTITUTION SYNDROME [None]
  - PULMONARY TUBERCULOSIS [None]
  - RESPIRATORY FAILURE [None]
